FAERS Safety Report 5725968-2 (Version None)
Quarter: 2008Q2

REPORT INFORMATION
  Report Type: 
  Country: None (occurrence: None)
  Receive Date: 20080502
  Receipt Date: 20080422
  Transmission Date: 20081010
  Serious: Yes (Hospitalization)
  Sender: FDA-Public Use
  Company Number: US-BAYER-US-2007-038206

PATIENT
  Age: 38 Year
  Sex: Male

DRUGS (1)
  1. BETASERON [Suspect]
     Indication: RELAPSING-REMITTING MULTIPLE SCLEROSIS
     Dosage: TOTAL DAILY DOSE: 8 MIU
     Route: 058
     Dates: start: 20010708

REACTIONS (9)
  - BALANCE DISORDER [None]
  - HOSPITALISATION [None]
  - HYPOAESTHESIA [None]
  - MOBILITY DECREASED [None]
  - MULTIPLE SCLEROSIS [None]
  - MUSCLE SPASMS [None]
  - MUSCLE SPASTICITY [None]
  - NEUTRALISING ANTIBODIES [None]
  - NUCHAL RIGIDITY [None]
